FAERS Safety Report 17855215 (Version 1)
Quarter: 2020Q2

REPORT INFORMATION
  Report Type: Spontaneous
  Country: US (occurrence: US)
  Receive Date: 20200603
  Receipt Date: 20200603
  Transmission Date: 20200714
  Serious: Yes (Hospitalization)
  Sender: FDA-Public Use
  Company Number: None

PATIENT
  Sex: Male

DRUGS (1)
  1. AMBRISENTAN [Suspect]
     Active Substance: AMBRISENTAN
     Indication: PULMONARY ARTERIAL HYPERTENSION
     Route: 048
     Dates: start: 20190408

REACTIONS (7)
  - Fluid overload [None]
  - Ascites [None]
  - Sputum abnormal [None]
  - Oedema [None]
  - Dyspnoea [None]
  - Oxygen saturation decreased [None]
  - Wheezing [None]
